FAERS Safety Report 5289174-0 (Version None)
Quarter: 2007Q1

REPORT INFORMATION
  Report Type: 
  Country: None (occurrence: None)
  Receive Date: 20070119
  Receipt Date: 20061005
  Transmission Date: 20070707
  Serious: Yes (Disabling)
  Sender: FDA-Public Use
  Company Number: WAES 0610USA04269

PATIENT
  Age: 74 Year
  Sex: Female
  Weight: 49.8957 kg

DRUGS (5)
  1. CUPRIMINE [Suspect]
     Indication: RHEUMATOID ARTHRITIS
     Dosage: 250 MG/DAILY/PO
     Route: 048
     Dates: start: 20060831, end: 20061018
  2. COMBUNOX [Concomitant]
  3. FORTEO [Concomitant]
  4. QUINNONE [Concomitant]
  5. IMIPRAMINE HYDROCHLORIDE [Concomitant]

REACTIONS (3)
  - AGEUSIA [None]
  - MOUTH ULCERATION [None]
  - WEIGHT DECREASED [None]
